FAERS Safety Report 5345055-5 (Version None)
Quarter: 2007Q2

REPORT INFORMATION
  Report Type: 
  Country: None (occurrence: None)
  Receive Date: 20070425
  Receipt Date: 20060622
  Transmission Date: 20071010
  Serious: Yes (Other)
  Sender: FDA-Public Use
  Company Number: WAES 0606USA04384

PATIENT
  Age: 4 Year
  Sex: Male

DRUGS (3)
  1. SINGULAIR [Suspect]
     Indication: ASTHMA
     Dosage: 1X/PO
     Route: 048
     Dates: start: 20051101
  2. SINGULAIR [Suspect]
     Indication: RHINITIS ALLERGIC
     Dosage: 1X/PO
     Route: 048
     Dates: start: 20051101
  3. ALBUTEROL [Concomitant]

REACTIONS (1)
  - ANAPHYLACTIC REACTION [None]
